FAERS Safety Report 26024586 (Version 1)
Quarter: 2025Q4

REPORT INFORMATION
  Report Type: Spontaneous
  Country: US (occurrence: US)
  Receive Date: 20251111
  Receipt Date: 20251111
  Transmission Date: 20260118
  Serious: Yes (Hospitalization, Other)
  Sender: CIPLA
  Company Number: US-CIPLA LTD.-2025US13988

PATIENT

DRUGS (2)
  1. VORTIOXETINE [Suspect]
     Active Substance: VORTIOXETINE
     Dosage: UNK
     Route: 048
  2. ACETAMINOPHEN [Suspect]
     Active Substance: ACETAMINOPHEN
     Dosage: UNK
     Route: 048

REACTIONS (6)
  - Cardiac arrest [Recovered/Resolved]
  - Metabolic acidosis [Recovered/Resolved]
  - Generalised tonic-clonic seizure [Recovered/Resolved]
  - Hypotension [Recovered/Resolved]
  - Intentional overdose [Recovered/Resolved]
  - Suicide attempt [Unknown]
